FAERS Safety Report 10051439 (Version 1)
Quarter: 2014Q2

REPORT INFORMATION
  Report Type: Spontaneous
  Country: US (occurrence: US)
  Receive Date: 20140401
  Receipt Date: 20140401
  Transmission Date: 20141212
  Serious: No
  Sender: FDA-Public Use
  Company Number: US-PFIZER INC-2014091354

PATIENT
  Age: 56 Year
  Sex: Female

DRUGS (2)
  1. ZOLOFT [Suspect]
     Indication: AFFECTIVE DISORDER
     Dosage: 100 MG, UNK
  2. ZOLOFT [Suspect]
     Dosage: 150 MG, UNK

REACTIONS (1)
  - Drug ineffective [Unknown]
